FAERS Safety Report 9685408 (Version 4)
Quarter: 2013Q4

REPORT INFORMATION
  Report Type: Spontaneous
  Country: AU (occurrence: AU)
  Receive Date: 20131113
  Receipt Date: 20131126
  Transmission Date: 20140711
  Serious: Yes (Hospitalization)
  Sender: FDA-Public Use
  Company Number: AU-JNJFOC-20131102676

PATIENT
  Sex: Male

DRUGS (2)
  1. XARELTO [Suspect]
     Indication: EMBOLISM VENOUS
     Route: 048
     Dates: start: 2013, end: 2013
  2. XARELTO [Suspect]
     Indication: PULMONARY EMBOLISM
     Route: 048
     Dates: start: 2013, end: 2013

REACTIONS (6)
  - Gallbladder pain [Recovered/Resolved]
  - Epistaxis [Unknown]
  - Pain [Unknown]
  - Faeces discoloured [Unknown]
  - Haemorrhage [Recovered/Resolved]
  - Cholelithiasis [Recovered/Resolved]
